FAERS Safety Report 23262737 (Version 3)
Quarter: 2024Q1

REPORT INFORMATION
  Report Type: Spontaneous
  Country: US (occurrence: US)
  Receive Date: 20231205
  Receipt Date: 20240109
  Transmission Date: 20240410
  Serious: Yes (Hospitalization, Other)
  Sender: FDA-Public Use
  Company Number: US-MLMSERVICE-20231116-4669399-1

PATIENT
  Age: 46 Year
  Sex: Male

DRUGS (3)
  1. TRIAMCINOLONE [Suspect]
     Active Substance: TRIAMCINOLONE
     Indication: Arthralgia
     Dosage: 1DF 1 TOTAL
     Route: 014
  2. TRIAMCINOLONE [Suspect]
     Active Substance: TRIAMCINOLONE
     Dosage: 1DF 1 TOTAL
     Route: 014
  3. ITRACONAZOLE [Suspect]
     Active Substance: ITRACONAZOLE
     Indication: Histoplasmosis
     Route: 065

REACTIONS (6)
  - Adrenal insufficiency [Recovered/Resolved]
  - Hypothalamic pituitary adrenal axis suppression [Recovered/Resolved]
  - Drug interaction [Recovered/Resolved]
  - Muscular weakness [Recovered/Resolved]
  - Ecchymosis [Recovered/Resolved]
  - Central obesity [Recovered/Resolved]
